FAERS Safety Report 5676538-6 (Version None)
Quarter: 2008Q1

REPORT INFORMATION
  Report Type: 
  Country: None (occurrence: None)
  Receive Date: 20080321
  Receipt Date: 20080321
  Transmission Date: 20080703
  Serious: No
  Sender: FDA-Public Use
  Company Number: None

PATIENT
  Age: 28 Month
  Sex: Female
  Weight: 16 kg

DRUGS (2)
  1. TAMIFLU [Suspect]
     Indication: INFLUENZA
     Dosage: BID/PO
     Route: 048
     Dates: start: 20080301, end: 20080305
  2. TAMIFLU [Suspect]
     Indication: INFLUENZA
     Dosage: BID/PO
     Route: 048
     Dates: start: 20080302, end: 20080306

REACTIONS (2)
  - AGGRESSION [None]
  - FEELING ABNORMAL [None]
